FAERS Safety Report 4925113-7 (Version None)
Quarter: 2006Q1

REPORT INFORMATION
  Report Type: 
  Country: None (occurrence: None)
  Receive Date: 20060228
  Receipt Date: 20051028
  Transmission Date: 20060701
  Serious: No
  Sender: FDA-Public Use
  Company Number: US-GLAXOSMITHKLINE-A0580093A

PATIENT
  Age: 51 Year
  Sex: Male
  Weight: 102.3 kg

DRUGS (3)
  1. AVODART [Suspect]
     Indication: BENIGN PROSTATIC HYPERPLASIA
     Route: 048
     Dates: start: 20050401
  2. AVAPRO [Concomitant]
     Route: 065
  3. VIAGRA [Concomitant]
     Route: 065

REACTIONS (1)
  - TINNITUS [None]
